FAERS Safety Report 13184255 (Version 2)
Quarter: 2017Q3

REPORT INFORMATION
  Report Type: Spontaneous
  Country: US (occurrence: US)
  Receive Date: 20170203
  Receipt Date: 20170814
  Transmission Date: 20171127
  Serious: No
  Sender: FDA-Public Use
  Company Number: US-TEVA-729026ACC

PATIENT
  Age: 58 Year
  Sex: Male

DRUGS (2)
  1. CRESTOR [Concomitant]
     Active Substance: ROSUVASTATIN CALCIUM
  2. ROSUVASTATIN. [Suspect]
     Active Substance: ROSUVASTATIN
     Indication: BLOOD CHOLESTEROL INCREASED
     Dates: start: 20170104, end: 20170105

REACTIONS (5)
  - Dizziness [Unknown]
  - Nightmare [Unknown]
  - Muscular weakness [Unknown]
  - Abdominal pain [Unknown]
  - Eye disorder [Unknown]

NARRATIVE: CASE EVENT DATE: 20170104
